FAERS Safety Report 12686202 (Version 1)
Quarter: 2016Q3

REPORT INFORMATION
  Report Type: Report from Study
  Country: BR (occurrence: BR)
  Receive Date: 20160825
  Receipt Date: 20160825
  Transmission Date: 20161109
  Serious: Yes (Hospitalization, Other)
  Sender: FDA-Public Use
  Company Number: PHHY2016BR110696

PATIENT
  Sex: Female
  Weight: 56 kg

DRUGS (2)
  1. HEIMER [Concomitant]
     Active Substance: MEMANTINE HYDROCHLORIDE
     Indication: DEMENTIA ALZHEIMER^S TYPE
     Dosage: 2 TABLETS A DAY, ORALLY
     Route: 048
     Dates: start: 201410
  2. EXELON PATCH [Suspect]
     Active Substance: RIVASTIGMINE
     Indication: DEMENTIA ALZHEIMER^S TYPE
     Dosage: PATCH 10 (CM2), QD
     Route: 062
     Dates: start: 201410, end: 20160808

REACTIONS (3)
  - Decreased immune responsiveness [Recovering/Resolving]
  - Weight decreased [Not Recovered/Not Resolved]
  - Herpes zoster [Recovering/Resolving]
